FAERS Safety Report 4287421-5 (Version None)
Quarter: 2004Q1

REPORT INFORMATION
  Report Type: 
  Country: None (occurrence: None)
  Receive Date: 20040205
  Receipt Date: 20030528
  Transmission Date: 20041129
  Serious: Yes (Other)
  Sender: FDA-Public Use
  Company Number: A208548

PATIENT
  Age: 15 Year
  Sex: Female
  Weight: 70.7611 kg

DRUGS (7)
  1. LITHIUM CARBONATE [Suspect]
     Indication: MENTAL DISORDER
     Dates: end: 20010901
  2. ZIPRASIDONE (CAPS) (ZIPRASIDONE) [Suspect]
     Indication: DEVELOPMENTAL DELAY
     Dosage: 80 MG (BID), ORAL
     Route: 048
     Dates: start: 20010801
  3. ZIPRASIDONE (CAPS) (ZIPRASIDONE) [Suspect]
     Indication: PSYCHOTIC DISORDER
     Dosage: 80 MG (BID), ORAL
     Route: 048
     Dates: start: 20010801
  4. ZIPRASIDONE (CAPS) (ZIPRASIDONE) [Suspect]
     Indication: SCHIZOAFFECTIVE DISORDER
     Dosage: 80 MG (BID), ORAL
     Route: 048
     Dates: start: 20010801
  5. CLOZARIL [Concomitant]
  6. DEPAKOTE [Concomitant]
  7. COGENTIN [Concomitant]

REACTIONS (5)
  - BLOOD CHOLESTEROL INCREASED [None]
  - EYE MOVEMENT DISORDER [None]
  - GLOBULINS INCREASED [None]
  - PYELONEPHRITIS [None]
  - RED CELL DISTRIBUTION WIDTH INCREASED [None]
